FAERS Safety Report 6417270-0 (Version None)
Quarter: 2009Q4

REPORT INFORMATION
  Report Type: 
  Country: None (occurrence: None)
  Receive Date: 20091028
  Receipt Date: 20091014
  Transmission Date: 20100525
  Serious: Yes (Other)
  Sender: FDA-Public Use
  Company Number: PHHY2009JP45021

PATIENT
  Age: 86 Year
  Sex: Female

DRUGS (1)
  1. IMATINIB MESYLATE [Suspect]
     Indication: CHRONIC MYELOID LEUKAEMIA
     Dosage: 400 MG, UNK

REACTIONS (3)
  - BLOOD BLISTER [None]
  - CONJUNCTIVAL HAEMORRHAGE [None]
  - GASTRIC ANTRAL VASCULAR ECTASIA [None]
